FAERS Safety Report 7607817-0 (Version None)
Quarter: 2011Q3

REPORT INFORMATION
  Report Type: 
  Country: None (occurrence: None)
  Receive Date: 20110714
  Receipt Date: 20110704
  Transmission Date: 20111222
  Serious: Yes (Congenital Anomaly, Other)
  Sender: FDA-Public Use
  Company Number: FR-ABBOTT-11P-056-0709463-00

PATIENT

DRUGS (4)
  1. LAMIVUDINE (EPIVIR HBV) [Suspect]
     Indication: MATERNAL EXPOSURE DURING PREGNANCY
     Route: 064
  2. VIDEX [Suspect]
     Indication: MATERNAL EXPOSURE DURING PREGNANCY
     Route: 064
  3. KALETRA [Suspect]
     Indication: MATERNAL EXPOSURE DURING PREGNANCY
     Route: 064
  4. AZT [Suspect]
     Indication: MATERNAL EXPOSURE DURING PREGNANCY
     Route: 064

REACTIONS (2)
  - CONGENITAL NAEVUS [None]
  - MATERNAL EXPOSURE DURING PREGNANCY [None]
